FAERS Safety Report 12556205 (Version 1)
Quarter: 2016Q3

REPORT INFORMATION
  Report Type: Spontaneous
  Country: US (occurrence: None)
  Receive Date: 20160713
  Receipt Date: 20160713
  Transmission Date: 20161109
  Serious: Yes (Other)
  Sender: FDA-Public Use
  Company Number: None

PATIENT
  Sex: Female
  Weight: 52.16 kg

DRUGS (10)
  1. LEVOTHYROXINE. [Concomitant]
     Active Substance: LEVOTHYROXINE
  2. B1 [Concomitant]
  3. MYRBETRIQ [Suspect]
     Active Substance: MIRABEGRON
     Indication: MICTURITION URGENCY
     Dosage: 1 PILL ANYTIME, MOUTH
     Route: 048
     Dates: end: 20160527
  4. DILTIAZEM. [Concomitant]
     Active Substance: DILTIAZEM
  5. CAL [Concomitant]
  6. VITAMIN B12 [Concomitant]
     Active Substance: CYANOCOBALAMIN
  7. VITAMINS [Concomitant]
     Active Substance: VITAMINS
  8. FISH OIL [Concomitant]
     Active Substance: FISH OIL
  9. 13 [Concomitant]
  10. C [Concomitant]

REACTIONS (8)
  - Pain [None]
  - Gait disturbance [None]
  - Coordination abnormal [None]
  - Mobility decreased [None]
  - Myalgia [None]
  - Emotional disorder [None]
  - Pain in extremity [None]
  - Muscle strain [None]
